FAERS Safety Report 5004329-8 (Version None)
Quarter: 2006Q2

REPORT INFORMATION
  Report Type: 
  Country: None (occurrence: None)
  Receive Date: 20060517
  Receipt Date: 20060424
  Transmission Date: 20061013
  Serious: No
  Sender: FDA-Public Use
  Company Number: ZA-MERCK-0604ZAF00012

PATIENT
  Age: 70 Year
  Sex: Female
  Weight: 76 kg

DRUGS (2)
  1. IRBESARTAN [Concomitant]
     Indication: HYPERTENSION
     Route: 065
  2. ZETIA [Suspect]
     Indication: HYPERCHOLESTEROLAEMIA
     Route: 048
     Dates: start: 20060104, end: 20060101

REACTIONS (1)
  - DRUG INEFFECTIVE [None]
